FAERS Safety Report 9482694 (Version 1)
Quarter: 2013Q3

REPORT INFORMATION
  Report Type: Report from Study
  Country: US (occurrence: US)
  Receive Date: 20130828
  Receipt Date: 20130828
  Transmission Date: 20140515
  Serious: Yes (Hospitalization)
  Sender: FDA-Public Use
  Company Number: US-JNJFOC-20130812979

PATIENT
  Sex: Female
  Weight: 49.9 kg

DRUGS (9)
  1. REMICADE [Suspect]
     Indication: RHEUMATOID ARTHRITIS
     Route: 042
     Dates: start: 2001
  2. REMICADE [Suspect]
     Indication: CROHN^S DISEASE
     Route: 042
     Dates: start: 2001
  3. CORTEF [Concomitant]
     Indication: ADDISON^S DISEASE
     Route: 048
     Dates: start: 1971
  4. CORTEF [Concomitant]
     Indication: CROHN^S DISEASE
     Route: 048
     Dates: start: 1971
  5. LISINOPRIL [Concomitant]
     Indication: CARDIAC DISORDER
     Route: 048
     Dates: start: 2009
  6. PROPRANOLOL [Concomitant]
     Indication: MIGRAINE
     Route: 048
     Dates: start: 2004
  7. PROTONIX [Concomitant]
     Indication: GASTROOESOPHAGEAL REFLUX DISEASE
     Route: 048
     Dates: start: 2003
  8. VENOFER [Concomitant]
     Indication: IRON DEFICIENCY
     Route: 042
     Dates: start: 2012
  9. ESTRADIOL [Concomitant]
     Indication: HORMONE REPLACEMENT THERAPY
     Route: 062
     Dates: start: 1985

REACTIONS (3)
  - Crohn^s disease [Recovered/Resolved]
  - Intestinal ulcer [Recovered/Resolved]
  - Hypothyroidism [Unknown]
